FAERS Safety Report 10362670 (Version 1)
Quarter: 2014Q3

REPORT INFORMATION
  Report Type: Spontaneous
  Country: US (occurrence: US)
  Receive Date: 20140805
  Receipt Date: 20140805
  Transmission Date: 20150326
  Serious: No
  Sender: FDA-Public Use
  Company Number: US-PFIZER INC-2014216554

PATIENT
  Age: 72 Year
  Sex: Male
  Weight: 102.49 kg

DRUGS (3)
  1. SECTRAL [Concomitant]
     Active Substance: ACEBUTOLOL HYDROCHLORIDE
     Indication: HYPERTENSION
     Dosage: 400 MG, DAILY
  2. ZYVOX [Suspect]
     Active Substance: LINEZOLID
     Indication: ENTEROCOCCAL INFECTION
  3. ZYVOX [Suspect]
     Active Substance: LINEZOLID
     Indication: POST PROCEDURAL INFECTION
     Dosage: 600 MG, 2X/DAY
     Dates: start: 20140729

REACTIONS (4)
  - Dizziness [Unknown]
  - Tremor [Recovering/Resolving]
  - Anxiety [Unknown]
  - Musculoskeletal stiffness [Unknown]

NARRATIVE: CASE EVENT DATE: 20140731
